FAERS Safety Report 17967700 (Version 4)
Quarter: 2021Q3

REPORT INFORMATION
  Report Type: Spontaneous
  Country: US (occurrence: US)
  Receive Date: 20200701
  Receipt Date: 20210811
  Transmission Date: 20211014
  Serious: No
  Sender: FDA-Public Use
  Company Number: US-PFIZER INC-2020252879

PATIENT
  Age: 54 Year
  Sex: Female

DRUGS (2)
  1. IBRANCE [Suspect]
     Active Substance: PALBOCICLIB
     Dosage: 75 MG
     Dates: start: 20200617, end: 2020
  2. IBRANCE [Suspect]
     Active Substance: PALBOCICLIB
     Dosage: 125 MG
     Dates: start: 20200616

REACTIONS (5)
  - Arthralgia [Unknown]
  - White blood cell count decreased [Unknown]
  - Insomnia [Unknown]
  - Dysgeusia [Unknown]
  - Taste disorder [Unknown]

NARRATIVE: CASE EVENT DATE: 2020
